FAERS Safety Report 8793726 (Version 2)
Quarter: 2012Q4

REPORT INFORMATION
  Report Type: 
  Country: GB (occurrence: GB)
  Receive Date: 20120917
  Receipt Date: 20120929
  Transmission Date: 20130627
  Serious: Yes (Death, Hospitalization)
  Sender: FDA-Public Use
  Company Number: GB-B.I. PHARMACEUTICALS,INC./RIDGEFIELD-2012-UK-01213UK

PATIENT
  Age: 58 Year
  Sex: Male
  Weight: 85 kg

DRUGS (9)
  1. PRADAXA [Suspect]
     Indication: SUPRAVENTRICULAR TACHYARRHYTHMIA
     Dosage: 300 mg
     Route: 048
     Dates: start: 20120705
  2. ASPIRIN [Suspect]
     Indication: ACUTE CORONARY SYNDROME
     Dosage: 75 mg
     Route: 048
  3. EPLERENONE [Concomitant]
     Indication: CARDIAC FAILURE
     Dosage: 50 mg
     Route: 048
  4. FUROSEMIDE [Concomitant]
     Indication: CARDIAC FAILURE
     Dosage: 40 mg
     Route: 048
  5. AMIODARONE [Concomitant]
     Indication: ARRHYTHMIA
     Dosage: 100 mg
     Route: 048
  6. SERTRALINE [Concomitant]
     Indication: DEPRESSION
     Dosage: 50 mg
     Route: 048
  7. RAMIPRIL [Concomitant]
     Indication: CARDIAC FAILURE
     Dosage: 10 mg
     Route: 048
  8. ATORVASTATIN [Concomitant]
     Indication: BLOOD CHOLESTEROL
     Dosage: 20 mg
     Route: 048
  9. OMEPRAZOLE [Concomitant]
     Dosage: 20 mg
     Route: 048

REACTIONS (6)
  - Death [Fatal]
  - Haematuria [Recovered/Resolved]
  - Epistaxis [Recovered/Resolved]
  - Mouth haemorrhage [Recovered/Resolved]
  - Renal impairment [Unknown]
  - General physical health deterioration [Unknown]
